FAERS Safety Report 5531311-4 (Version None)
Quarter: 2007Q4

REPORT INFORMATION
  Report Type: 
  Country: None (occurrence: None)
  Receive Date: 20071128
  Receipt Date: 20071114
  Transmission Date: 20080405
  Serious: Yes (Disabling, Other)
  Sender: FDA-Public Use
  Company Number: 2007S1008546

PATIENT
  Age: 10 Year
  Sex: Male

DRUGS (10)
  1. CYSTAGON [Suspect]
     Indication: CYSTINOSIS
     Dosage: DAILY; ORAL; 19.4 MG/KG; DAILY; ORAL; 36 MG/KG; DAILY; ORAL;  5400 MG; DAILY; ORAL
     Route: 048
     Dates: end: 20070101
  2. CYSTAGON [Suspect]
     Indication: CYSTINOSIS
     Dosage: DAILY; ORAL; 19.4 MG/KG; DAILY; ORAL; 36 MG/KG; DAILY; ORAL;  5400 MG; DAILY; ORAL
     Route: 048
     Dates: start: 19980108
  3. CYSTAGON [Suspect]
     Indication: CYSTINOSIS
     Dosage: DAILY; ORAL; 19.4 MG/KG; DAILY; ORAL; 36 MG/KG; DAILY; ORAL;  5400 MG; DAILY; ORAL
     Route: 048
     Dates: start: 20070901
  4. ERYTHROPOETIN [Concomitant]
  5. PHOSPHATE [Concomitant]
  6. SODIUM BICARBONATE [Concomitant]
  7. HGH [Concomitant]
  8. INDOMETHACIN [Concomitant]
  9. ALFACALCIDOL [Concomitant]
  10. L-CARNITINE [Concomitant]

REACTIONS (5)
  - ARTHRALGIA [None]
  - BLOOD CREATININE INCREASED [None]
  - IMPETIGO [None]
  - JOINT STIFFNESS [None]
  - OSTEONECROSIS [None]
